FAERS Safety Report 9251134 (Version 3)
Quarter: 2013Q2

REPORT INFORMATION
  Report Type: Spontaneous
  Country: NL (occurrence: NL)
  Receive Date: 20130424
  Receipt Date: 20130514
  Transmission Date: 20140414
  Serious: Yes (Other)
  Sender: FDA-Public Use
  Company Number: NL-BAYER-2013-049045

PATIENT
  Age: 46 Year
  Sex: Female

DRUGS (1)
  1. MICROGYNON 30 [Suspect]
     Indication: CONTRACEPTION
     Dosage: UNK
     Dates: start: 200301, end: 201303

REACTIONS (1)
  - Deep vein thrombosis [Recovered/Resolved with Sequelae]
